FAERS Safety Report 5056944-3 (Version None)
Quarter: 2006Q2

REPORT INFORMATION
  Report Type: 
  Country: None (occurrence: None)
  Receive Date: 20060622
  Receipt Date: 20051025
  Transmission Date: 20061013
  Serious: Yes (Hospitalization)
  Sender: FDA-Public Use
  Company Number: US-JNJFOC-20050902023

PATIENT
  Age: 74 Year
  Sex: Female
  Weight: 45.3597 kg

DRUGS (2)
  1. SANDOZ FENTANYL TRANSDERMAL SYSTEMS (FENTANYL) PATCH [Suspect]
     Indication: PAIN
     Dosage: SEE IMAGE
     Route: 062
     Dates: start: 20050501, end: 20050801
  2. SANDOZ FENTANYL TRANSDERMAL SYSTEMS (FENTANYL) PATCH [Suspect]
     Indication: PAIN
     Dosage: SEE IMAGE
     Route: 062
     Dates: start: 20050801

REACTIONS (3)
  - ABDOMINAL PAIN [None]
  - CONSTIPATION [None]
  - WEIGHT DECREASED [None]
